FAERS Safety Report 12859025 (Version 2)
Quarter: 2017Q1

REPORT INFORMATION
  Report Type: Spontaneous
  Country: US (occurrence: US)
  Receive Date: 20161018
  Receipt Date: 20170109
  Transmission Date: 20170428
  Serious: Yes (Other)
  Sender: FDA-Public Use
  Company Number: US-BAYER-2015-190046

PATIENT
  Sex: Female
  Weight: 83 kg

DRUGS (24)
  1. BACITRACIN. [Concomitant]
     Active Substance: BACITRACIN
     Dosage: UNK
     Dates: start: 2008
  2. TYLENOL [Concomitant]
     Active Substance: ACETAMINOPHEN
     Indication: PAIN
  3. ACYCLOVIR [ACICLOVIR] [Concomitant]
     Active Substance: ACYCLOVIR
     Dosage: UNK
     Dates: start: 20150102
  4. VITAMIN B12 [Concomitant]
     Active Substance: CYANOCOBALAMIN
     Indication: PROPHYLAXIS
     Route: 060
  5. NYSTOP [Concomitant]
     Active Substance: NYSTATIN
     Dosage: UNK
     Dates: start: 2012
  6. PRAVASTATIN. [Concomitant]
     Active Substance: PRAVASTATIN
     Indication: BLOOD CHOLESTEROL ABNORMAL
     Dosage: UNK
     Dates: start: 201504, end: 201506
  7. AMLODIPINE [Concomitant]
     Active Substance: AMLODIPINE BESYLATE
     Dosage: UNK
     Dates: start: 2010
  8. AVELOX [Suspect]
     Active Substance: MOXIFLOXACIN HYDROCHLORIDE
     Indication: BRONCHITIS
     Dosage: 400 MG, QD
     Dates: start: 20101012
  9. AVELOX [Suspect]
     Active Substance: MOXIFLOXACIN HYDROCHLORIDE
     Indication: URINARY TRACT INFECTION
  10. CIPROFLOXACIN. [Suspect]
     Active Substance: CIPROFLOXACIN
     Indication: URINARY TRACT INFECTION
     Dosage: 250 MG, UNK
     Route: 048
     Dates: start: 20080920
  11. CIPROFLOXACIN. [Suspect]
     Active Substance: CIPROFLOXACIN
     Indication: BRONCHITIS
     Dosage: 500 MG, BID
     Route: 048
     Dates: start: 20100917
  12. PREDNISONE. [Concomitant]
     Active Substance: PREDNISONE
     Dosage: UNK
     Dates: start: 20160114
  13. PRAVASTATIN. [Concomitant]
     Active Substance: PRAVASTATIN
     Indication: BLOOD CHOLESTEROL ABNORMAL
     Dosage: UNK
     Dates: start: 201512
  14. PREDNISONE. [Concomitant]
     Active Substance: PREDNISONE
     Dosage: UNK
     Dates: start: 2009
  15. AVELOX [Suspect]
     Active Substance: MOXIFLOXACIN HYDROCHLORIDE
     Indication: LUNG INFECTION
     Dosage: UNK
     Dates: start: 201304
  16. AVAPRO [Concomitant]
     Active Substance: IRBESARTAN
     Indication: HYPERTENSION
     Dosage: UNK
     Dates: start: 2011, end: 2013
  17. CLOBETASOL [Concomitant]
     Active Substance: CLOBETASOL
     Dosage: UNK
     Dates: start: 2008
  18. AMITRIPTYLINE [Concomitant]
     Active Substance: AMITRIPTYLINE
     Dosage: UNK
     Dates: start: 2009
  19. METOPROLOL. [Concomitant]
     Active Substance: METOPROLOL
     Dosage: UNK
     Dates: start: 20151229, end: 20160118
  20. LOSARTAN. [Concomitant]
     Active Substance: LOSARTAN
     Indication: BLOOD PRESSURE ABNORMAL
     Dosage: UNK
     Dates: start: 201605
  21. LOSARTAN. [Concomitant]
     Active Substance: LOSARTAN
     Indication: BLOOD PRESSURE ABNORMAL
     Dosage: UNK
     Dates: start: 201604, end: 201605
  22. CIPROFLOXACIN. [Suspect]
     Active Substance: CIPROFLOXACIN
     Indication: BRONCHITIS
     Dosage: 250 MG, QD
     Route: 048
     Dates: start: 20080819, end: 20080819
  23. VALACICLOVIR [Concomitant]
     Active Substance: VALACYCLOVIR HYDROCHLORIDE
     Dosage: UNK
     Dates: start: 2010, end: 2011
  24. AMPICILLIN [Concomitant]
     Active Substance: AMPICILLIN
     Dosage: UNK
     Dates: start: 20150616

REACTIONS (6)
  - Anxiety [None]
  - Neuropathy peripheral [Not Recovered/Not Resolved]
  - Hypoaesthesia [None]
  - Paraesthesia [None]
  - Neuropathy peripheral [None]
  - Pain [None]

NARRATIVE: CASE EVENT DATE: 201011
